FAERS Safety Report 24777486 (Version 1)
Quarter: 2024Q4

REPORT INFORMATION
  Report Type: Spontaneous
  Country: GB (occurrence: GB)
  Receive Date: 20241226
  Receipt Date: 20241226
  Transmission Date: 20250115
  Serious: Yes (Other)
  Sender: PERRIGO
  Company Number: GB-MHRA-TPP21645804C11033927YC1716555467324

PATIENT
  Age: 63 Year
  Sex: Male
  Weight: 82 kg

DRUGS (3)
  1. FEXOFENADINE [Suspect]
     Active Substance: FEXOFENADINE HYDROCHLORIDE
     Indication: Ill-defined disorder
     Route: 065
  2. ATORVASTATIN [Concomitant]
     Active Substance: ATORVASTATIN
     Indication: Ill-defined disorder
     Dosage: 1 DOSAGE FORM
     Route: 065
     Dates: start: 20230901, end: 20240523
  3. MIRTAZAPINE [Concomitant]
     Active Substance: MIRTAZAPINE
     Indication: Ill-defined disorder
     Dosage: 1 DOSAGE FORM
     Route: 065
     Dates: start: 20231002, end: 20240523

REACTIONS (1)
  - Rash [Recovered/Resolved]
